FAERS Safety Report 26007389 (Version 2)
Quarter: 2025Q4

REPORT INFORMATION
  Report Type: Spontaneous
  Country: US (occurrence: US)
  Receive Date: 20251106
  Receipt Date: 20251113
  Transmission Date: 20260117
  Serious: No
  Sender: MALLINCKRODT
  Company Number: US-MALLINCKRODT-MNK202506855

PATIENT
  Sex: Male

DRUGS (6)
  1. CORTICOTROPIN [Suspect]
     Active Substance: CORTICOTROPIN
     Indication: Sympathetic ophthalmia
     Dosage: 80 UNITS
     Route: 058
  2. CORTICOTROPIN [Suspect]
     Active Substance: CORTICOTROPIN
  3. CURCUMIN [Concomitant]
     Active Substance: CURCUMIN
     Dosage: UNKNOWN
  4. GLUCOSAMINE + CHONDROITIN + MSM [Concomitant]
     Dosage: UNKNOWN
  5. LATANOPROST [Concomitant]
     Active Substance: LATANOPROST
     Dosage: UNKNOWN
  6. VITAMINS NOS [Concomitant]
     Active Substance: VITAMINS
     Dosage: UNKNOWN

REACTIONS (1)
  - Intraocular pressure increased [Unknown]
